FAERS Safety Report 8515843-2 (Version None)
Quarter: 2012Q3

REPORT INFORMATION
  Report Type: 
  Country: None (occurrence: None)
  Receive Date: 20120717
  Receipt Date: 20120713
  Transmission Date: 20120928
  Serious: Yes (Other)
  Sender: FDA-Public Use
  Company Number: US-PFIZER INC-2012167633

PATIENT
  Age: 67 Year
  Sex: Female

DRUGS (4)
  1. NICODERM CQ [Suspect]
     Indication: SMOKING CESSATION THERAPY
     Dosage: UNK
  2. COMMIT [Suspect]
     Indication: SMOKING CESSATION THERAPY
     Dosage: UNK
  3. CHANTIX [Suspect]
     Indication: SMOKING CESSATION THERAPY
     Dosage: UNK
  4. NIACIN [Suspect]
     Indication: SMOKING CESSATION THERAPY
     Dosage: UNK

REACTIONS (5)
  - TENSION [None]
  - PHARYNGITIS STREPTOCOCCAL [None]
  - TONSILLAR HYPERTROPHY [None]
  - DRUG INEFFECTIVE [None]
  - MALAISE [None]
